FAERS Safety Report 8849211 (Version 1)
Quarter: 2012Q4

REPORT INFORMATION
  Report Type: 
  Country: FR (occurrence: FR)
  Receive Date: 20121019
  Receipt Date: 20121019
  Transmission Date: 20130627
  Serious: Yes (Death, Congenital Anomaly)
  Sender: FDA-Public Use
  Company Number: FR-ELI_LILLY_AND_COMPANY-FR201210002595

PATIENT

DRUGS (3)
  1. ZYPREXA [Suspect]
     Dosage: UNK
     Route: 064
     Dates: start: 201107, end: 20111027
  2. TERCIAN [Concomitant]
     Dosage: UNK
     Route: 064
     Dates: start: 201107, end: 20111027
  3. ALPRAZOLAM [Concomitant]
     Dosage: UNK
     Route: 064
     Dates: start: 201107, end: 20111027

REACTIONS (2)
  - Encephalocele [Fatal]
  - Foetal exposure during pregnancy [Unknown]
